FAERS Safety Report 4318022-8 (Version None)
Quarter: 2004Q1

REPORT INFORMATION
  Report Type: 
  Country: None (occurrence: None)
  Receive Date: 20040316
  Receipt Date: 20040309
  Transmission Date: 20041129
  Serious: Yes (Disabling)
  Sender: FDA-Public Use
  Company Number: WAES 0403USA00866

PATIENT
  Age: 66 Year
  Sex: Female

DRUGS (12)
  1. ASCORBIC ACID [Concomitant]
  2. CALCIUM (UNSPECIFIED) [Concomitant]
  3. CHONDROITIN [Concomitant]
  4. NEXIUM [Concomitant]
  5. GLUCOSAMINE [Concomitant]
  6. MAXZIDE [Concomitant]
  7. REMICADE [Concomitant]
     Dates: start: 20030901
  8. SYNTHROID [Concomitant]
  9. ZOCOR [Suspect]
     Indication: HYPERCHOLESTEROLAEMIA
     Route: 048
     Dates: start: 20010301
  10. ZOCOR [Suspect]
     Route: 048
     Dates: end: 20040218
  11. BEXTRA [Concomitant]
  12. VITAMINS (UNSPECIFIED) [Concomitant]

REACTIONS (3)
  - HOARSENESS [None]
  - LARYNGITIS [None]
  - VOCAL CORD PARESIS [None]
